FAERS Safety Report 18501921 (Version 1)
Quarter: 2020Q4

REPORT INFORMATION
  Report Type: Spontaneous
  Country: US (occurrence: US)
  Receive Date: 20201113
  Receipt Date: 20201113
  Transmission Date: 20210114
  Serious: Yes (Hospitalization)
  Sender: FDA-Public Use
  Company Number: None

PATIENT
  Sex: Male

DRUGS (3)
  1. MAGNESIUM, SMZ-TMP, POTASSIUM CHLORIDE, SPIRONOLACTONE [Concomitant]
  2. NEULASTA [Suspect]
     Active Substance: PEGFILGRASTIM
     Indication: CHRONIC LYMPHOCYTIC LEUKAEMIA
     Dosage: ?          OTHER FREQUENCY:EVERY 21 DAYS;?
     Route: 058
  3. XARELTO, FINASTERIDE, ALLOPURINOL, LEVOTHYROXINE, FAMCICLOVIR [Concomitant]

REACTIONS (1)
  - Hospitalisation [None]
